FAERS Safety Report 7045746-4 (Version None)
Quarter: 2010Q4

REPORT INFORMATION
  Report Type: 
  Country: None (occurrence: None)
  Receive Date: 20101014
  Receipt Date: 20101001
  Transmission Date: 20110411
  Serious: Yes (Hospitalization)
  Sender: FDA-Public Use
  Company Number: FR-TEVA-250772ISR

PATIENT
  Sex: Male

DRUGS (11)
  1. CARBOPLATIN [Suspect]
     Dosage: 6 AREA-UNDER-THE-CURVE
     Route: 042
     Dates: start: 20100909, end: 20100909
  2. ETOPOSIDE [Concomitant]
     Route: 042
     Dates: start: 20100909, end: 20100909
  3. ATENOLOL [Concomitant]
  4. IRBESARTAN + HYDROCHLOROTHIAZIDE [Concomitant]
  5. NICORANDIL [Concomitant]
  6. ATORVASTATIN CALCIUM [Concomitant]
  7. AMLODIPINE BESYLATE [Concomitant]
  8. ACETYLSALICYLATE LYSINE [Concomitant]
  9. ONDANSETRON HYDROCHLORIDE [Concomitant]
     Indication: PREMEDICATION
     Dates: start: 20100909
  10. METHYLPREDNISOLONE [Concomitant]
     Indication: PREMEDICATION
     Dates: start: 20100909
  11. METOCLOPRAMIDE [Concomitant]
     Indication: PREMEDICATION
     Dates: start: 20100909

REACTIONS (1)
  - ACUTE CORONARY SYNDROME [None]
